FAERS Safety Report 8094338-7 (Version None)
Quarter: 2012Q1

REPORT INFORMATION
  Report Type: 
  Country: None (occurrence: None)
  Receive Date: 20120130
  Receipt Date: 20120124
  Transmission Date: 20120608
  Serious: No
  Sender: FDA-Public Use
  Company Number: US-PFIZER INC-2011295011

PATIENT
  Sex: Female
  Weight: 74.83 kg

DRUGS (5)
  1. PRISTIQ [Suspect]
     Indication: DEPRESSION
     Dosage: 50 MG, UNK
     Dates: start: 20110517, end: 20111103
  2. EFFEXOR XR [Suspect]
     Dosage: 150 MG, 1X/DAY
     Route: 048
     Dates: start: 20081117, end: 20110516
  3. EFFEXOR XR [Suspect]
     Dosage: 75 MG, 1X/DAY
     Route: 048
     Dates: end: 20081116
  4. LIPITOR [Concomitant]
     Dosage: 20 MG, UNK
  5. EFFEXOR XR [Suspect]
     Indication: DEPRESSION
     Dosage: 37.5 MG, 1X/DAY
     Route: 048
     Dates: start: 19990601

REACTIONS (3)
  - DEPRESSION [None]
  - WEIGHT LOSS POOR [None]
  - WEIGHT INCREASED [None]
